FAERS Safety Report 20205371 (Version 8)
Quarter: 2022Q4

REPORT INFORMATION
  Report Type: Spontaneous
  Country: DE (occurrence: DE)
  Receive Date: 20211220
  Receipt Date: 20221014
  Transmission Date: 20230113
  Serious: Yes (Hospitalization, Other)
  Sender: FDA-Public Use
  Company Number: DE-002147023-NVSC2021DE222834

PATIENT
  Age: 74 Year
  Sex: Male

DRUGS (60)
  1. PANTOPRAZOLE SODIUM [Suspect]
     Active Substance: PANTOPRAZOLE SODIUM
     Indication: Abdominal discomfort
     Dosage: 20 MILLIGRAM, DAILY, 20 MG, QD
     Route: 065
  2. CANDESARTAN CILEXETIL [Suspect]
     Active Substance: CANDESARTAN CILEXETIL
     Indication: Blood pressure abnormal
     Dosage: 32 MG, QD
     Route: 065
  3. HYGROTON [Suspect]
     Active Substance: CHLORTHALIDONE
     Indication: Blood pressure measurement
     Dosage: 0.5 DOSAGE FORM, DAILY, 0.5 DF, QD
     Route: 065
  4. DIGITOXIN [Suspect]
     Active Substance: DIGITOXIN
     Indication: Cardiac disorder
     Dosage: 1 DOSAGE FORM, DAILY, 1 DF, QD(NOT ON SUNDAYS)
     Route: 065
  5. DIGITOXIN [Suspect]
     Active Substance: DIGITOXIN
     Dosage: UNK
     Route: 065
  6. AMPHOTERICIN B [Suspect]
     Active Substance: AMPHOTERICIN B
     Indication: Product used for unknown indication
     Dosage: 3 DOSAGE FORM, DAILY, 1 DF, TID
     Route: 065
  7. TAMSULOSIN HYDROCHLORIDE [Suspect]
     Active Substance: TAMSULOSIN HYDROCHLORIDE
     Indication: Prostate infection
     Dosage: 0.4 MILLIGRAM, DAILY, 0.4 MG, QD
     Route: 065
  8. TACROLIMUS [Suspect]
     Active Substance: TACROLIMUS
     Indication: Product used for unknown indication
     Dosage: UNK ()
     Route: 065
  9. TACROLIMUS [Suspect]
     Active Substance: TACROLIMUS
     Dosage: 1 MILLIGRAM, BID, 1 MG, Q12H (1 MG, UNKNOWN FREQ)
     Route: 065
  10. TACROLIMUS [Suspect]
     Active Substance: TACROLIMUS
     Dosage: 0.5 MILLIGRAM, BID, 0.5 MG, Q12H (0.5 MG, TWICE DAILY)
     Route: 065
  11. FUROSEMIDE [Suspect]
     Active Substance: FUROSEMIDE
     Indication: Fluid retention
     Dosage: 40 MILLIGRAM, 40 MG, PRN
     Route: 065
  12. FUROSEMIDE [Suspect]
     Active Substance: FUROSEMIDE
     Route: 065
  13. FUROSEMIDE [Suspect]
     Active Substance: FUROSEMIDE
     Route: 065
  14. FUROSEMIDE [Suspect]
     Active Substance: FUROSEMIDE
     Route: 065
  15. ARANESP [Suspect]
     Active Substance: DARBEPOETIN ALFA
     Indication: Product used for unknown indication
     Dosage: 10 MILLIGRAM, WEEKLY, 10 MG, QW
     Route: 065
  16. CARVEDILOL [Suspect]
     Active Substance: CARVEDILOL
     Indication: Blood pressure measurement
     Dosage: 25 MILLIGRAM, DAILY, 25 MG, QD
     Route: 065
  17. CARVEDILOL [Suspect]
     Active Substance: CARVEDILOL
     Dosage: 25 MILLIGRAM, DAILY, 25 MG, QD
     Route: 065
  18. CARVEDILOL [Suspect]
     Active Substance: CARVEDILOL
     Dosage: 25 MG, (1/2 -0-0)
     Route: 065
  19. CARVEDILOL [Suspect]
     Active Substance: CARVEDILOL
     Dosage: 25 MG, QD (1-0-0)
     Route: 065
  20. CARVEDILOL [Suspect]
     Active Substance: CARVEDILOL
     Dosage: UNK
     Route: 065
  21. PROGRAF [Suspect]
     Active Substance: TACROLIMUS
     Indication: Transplant
     Dosage: 1 MILLIGRAM, 1.0 MG
     Route: 065
  22. PROGRAF [Suspect]
     Active Substance: TACROLIMUS
     Dosage: 1 MILLIGRAM, DAILY, 0.5 MG, BID
     Route: 065
  23. PROGRAF [Suspect]
     Active Substance: TACROLIMUS
     Dosage: 0.5 MILLIGRAM, BID
     Route: 065
  24. PROGRAF [Suspect]
     Active Substance: TACROLIMUS
     Dosage: 0.4 MILLIGRAM, DAILY
     Route: 065
  25. PROGRAF [Suspect]
     Active Substance: TACROLIMUS
     Dosage: 0.5 MILLIGRAM, BID
     Route: 065
  26. TORSEMIDE [Suspect]
     Active Substance: TORSEMIDE
     Indication: Product used for unknown indication
     Dosage: 0.5 DOSAGE FORM, 0.5 DF
     Route: 065
  27. MARCUMAR [Suspect]
     Active Substance: PHENPROCOUMON
     Indication: Cardiac disorder
     Dosage: 0.5 DOSAGE FORM, 0.5 DF
     Route: 065
  28. VALGANCICLOVIR [Suspect]
     Active Substance: VALGANCICLOVIR
     Indication: Product used for unknown indication
     Dosage: 450 MILLIGRAM, DAILY, 450 MG, QD
     Route: 065
  29. NITRENDIPINE [Suspect]
     Active Substance: NITRENDIPINE
     Indication: Blood pressure measurement
     Dosage: 40 MILLIGRAM, DAILY, 20 MG, BID
     Route: 065
  30. NITRENDIPINE [Suspect]
     Active Substance: NITRENDIPINE
     Dosage: 20 MILLIGRAM, DAILY, 10 MG, BID
     Route: 065
  31. NITRENDIPINE [Suspect]
     Active Substance: NITRENDIPINE
     Dosage: 2 DOSAGE FORM, DAILY
     Route: 065
  32. NITRENDIPINE [Suspect]
     Active Substance: NITRENDIPINE
     Dosage: 10 MG, BID
     Route: 065
  33. NITRENDIPINE [Suspect]
     Active Substance: NITRENDIPINE
     Dosage: 2 DF (20 MG), QD
     Route: 065
  34. NITRENDIPINE [Suspect]
     Active Substance: NITRENDIPINE
     Dosage: 20 MG (IN THE MORNING AFTER ABOUT 1 TO 2 HOURS)
     Route: 065
  35. NITRENDIPINE [Suspect]
     Active Substance: NITRENDIPINE
     Dosage: 10 MG, BID
     Route: 065
  36. NITRENDIPINE [Suspect]
     Active Substance: NITRENDIPINE
     Dosage: 40 MILLIGRAM, DAILY, 20 MG, BID
     Route: 065
  37. FLUVASTATIN [Suspect]
     Active Substance: FLUVASTATIN SODIUM
     Indication: Blood cholesterol
     Dosage: UNK, ()
     Route: 065
  38. DOXAZOSIN [Suspect]
     Active Substance: DOXAZOSIN MESYLATE
     Indication: Blood pressure measurement
     Dosage: 4 MILLIGRAM, 4 MG ( 1/2-2-2-0)
     Route: 065
  39. DOXAZOSIN [Suspect]
     Active Substance: DOXAZOSIN MESYLATE
     Dosage: 16 MILLIGRAM, DAILY, 8 MG, BID (RETARD)SUSTAINED RELEASE
     Route: 065
  40. DOXAZOSIN [Suspect]
     Active Substance: DOXAZOSIN MESYLATE
     Dosage: 8 MILLIGRAM, 8 MG (2 AND 1/2)
     Route: 065
  41. DOXAZOSIN [Suspect]
     Active Substance: DOXAZOSIN MESYLATE
     Dosage: 2 DOSAGE FORM, DAILY, 2 DF (8 MG), QD
     Route: 065
  42. DOXAZOSIN [Suspect]
     Active Substance: DOXAZOSIN MESYLATE
     Dosage: 8 MILLIGRAM, 8 MG (2 AND 1/2)
     Route: 065
  43. DOXAZOSIN [Suspect]
     Active Substance: DOXAZOSIN MESYLATE
     Dosage: 8 MG, BID (0-1-0-1)
     Route: 065
  44. DOXAZOSIN [Suspect]
     Active Substance: DOXAZOSIN MESYLATE
     Dosage: 16 MILLIGRAM
     Route: 065
  45. DOXAZOSIN [Suspect]
     Active Substance: DOXAZOSIN MESYLATE
     Dosage: 8 MG, BID (0-2-0-0)
     Route: 065
  46. COTRIMOXAZOLE [Suspect]
     Active Substance: SULFAMETHOXAZOLE\TRIMETHOPRIM
     Indication: Product used for unknown indication
     Dosage: 480 MG
     Route: 065
  47. COTRIMOXAZOLE [Suspect]
     Active Substance: SULFAMETHOXAZOLE\TRIMETHOPRIM
     Dosage: UNK
     Route: 065
  48. CALCIUM CARBONATE\CHOLECALCIFEROL [Suspect]
     Active Substance: CALCIUM CARBONATE\CHOLECALCIFEROL
     Indication: Product used for unknown indication
     Dosage: 2 DOSAGE FORM, DAILY, 1 DF, BID
     Route: 065
  49. CHOLECALCIFEROL [Suspect]
     Active Substance: CHOLECALCIFEROL
     Indication: Product used for unknown indication
     Dosage: ()
     Route: 065
  50. FERROUS GLYCINE SULFATE [Suspect]
     Active Substance: FERROUS GLYCINE SULFATE
     Indication: Product used for unknown indication
     Dosage: 100 MILLIGRAM, DAILY
     Route: 065
  51. SODIUM BICARBONATE [Suspect]
     Active Substance: SODIUM BICARBONATE
     Indication: Product used for unknown indication
     Dosage: 1 GRAM, DAILY, 1 G, QD
     Route: 065
  52. CANDESARTAN CILEXETIL [Suspect]
     Active Substance: CANDESARTAN CILEXETIL
     Indication: Blood pressure measurement
     Dosage: 32 MILLIGRAM, DAILY, 32 MG, QD
     Route: 065
  53. CANDESARTAN CILEXETIL [Suspect]
     Active Substance: CANDESARTAN CILEXETIL
     Dosage: UNK
     Route: 065
  54. MYFORTIC [Suspect]
     Active Substance: MYCOPHENOLATE SODIUM
     Indication: Transplant
     Dosage: 2 DOSAGE FORM, DAILY, 1 DF, BID
     Route: 065
  55. MYFORTIC [Suspect]
     Active Substance: MYCOPHENOLATE SODIUM
     Route: 065
  56. MYFORTIC [Suspect]
     Active Substance: MYCOPHENOLATE SODIUM
     Route: 065
  57. MYFORTIC [Suspect]
     Active Substance: MYCOPHENOLATE SODIUM
     Route: 065
  58. SODIUM BICARBONATE [Suspect]
     Active Substance: SODIUM BICARBONATE
     Indication: Product used for unknown indication
     Dosage: 1 G, QD
     Route: 065
  59. CHOLECALCIFEROL [Suspect]
     Active Substance: CHOLECALCIFEROL
     Indication: Product used for unknown indication
     Dosage: UNK ()
     Route: 065
  60. MINOXIDIL [Suspect]
     Active Substance: MINOXIDIL
     Indication: Blood pressure management
     Dosage: 2.5, TID (1-1-1) ()
     Route: 065

REACTIONS (61)
  - Haemorrhage [Unknown]
  - Hepatic steatosis [Unknown]
  - Haemoglobin decreased [Recovered/Resolved]
  - Diverticulum intestinal [Unknown]
  - Myalgia [Unknown]
  - Presyncope [Unknown]
  - Atrial fibrillation [Unknown]
  - Rectal prolapse [Unknown]
  - Actinic keratosis [Unknown]
  - Atrioventricular block [Unknown]
  - Mean cell volume increased [Recovered/Resolved]
  - Spinal stenosis [Unknown]
  - Delayed graft function [Unknown]
  - Activated partial thromboplastin time prolonged [Unknown]
  - SARS-CoV-2 antibody test positive [Unknown]
  - Spinal osteoarthritis [Unknown]
  - Carotid arteriosclerosis [Unknown]
  - Thrombosis [Unknown]
  - Restless legs syndrome [Unknown]
  - Left ventricular hypertrophy [Unknown]
  - Blood potassium increased [Unknown]
  - Vena cava injury [Unknown]
  - Renal cyst haemorrhage [Not Recovered/Not Resolved]
  - Haemorrhoids [Unknown]
  - Vitamin D decreased [Recovered/Resolved]
  - Incorrect dose administered [Unknown]
  - Glycosylated haemoglobin increased [Unknown]
  - Basal cell carcinoma [Recovered/Resolved]
  - Chronic kidney disease [Unknown]
  - Hyperparathyroidism [Unknown]
  - Pancreatic cystadenoma [Unknown]
  - Renal artery stenosis [Unknown]
  - Hepatosplenomegaly [Unknown]
  - Oedema peripheral [Unknown]
  - Vertigo [Unknown]
  - C-reactive protein increased [Unknown]
  - Arteriosclerosis [Unknown]
  - Metabolic acidosis [Unknown]
  - Dizziness [Unknown]
  - Bradycardia [Unknown]
  - Red blood cell count decreased [Recovered/Resolved]
  - Aortic dilatation [Unknown]
  - Aortic arteriosclerosis [Unknown]
  - Blood pressure fluctuation [Not Recovered/Not Resolved]
  - Benign prostatic hyperplasia [Unknown]
  - Gastrooesophageal reflux disease [Unknown]
  - Swelling [Unknown]
  - Benign prostatic hyperplasia [Unknown]
  - Squamous cell carcinoma of skin [Recovered/Resolved]
  - Headache [Unknown]
  - Restlessness [Unknown]
  - Drug ineffective [Unknown]
  - Anal cyst [Unknown]
  - Swelling face [Unknown]
  - Large intestine polyp [Unknown]
  - Aortic arteriosclerosis [Unknown]
  - Pulmonary hypertension [Unknown]
  - Aortic valve incompetence [Unknown]
  - Insomnia [Unknown]
  - Hypertension [Unknown]
  - Swelling of eyelid [Unknown]

NARRATIVE: CASE EVENT DATE: 20130401
